FAERS Safety Report 9519921 (Version 1)
Quarter: 2013Q3

REPORT INFORMATION
  Report Type: Spontaneous
  Country: US (occurrence: US)
  Receive Date: 20130912
  Receipt Date: 20130912
  Transmission Date: 20140515
  Serious: Yes (Other)
  Sender: FDA-Public Use
  Company Number: US-BAYER-2013-109876

PATIENT
  Age: 29 Year
  Sex: Female

DRUGS (1)
  1. MIRENA [Suspect]
     Indication: CONTRACEPTION
     Dosage: 20 ?G/D, CONT
     Route: 015
     Dates: start: 201207, end: 20130904

REACTIONS (4)
  - Genital haemorrhage [Not Recovered/Not Resolved]
  - Menstruation irregular [None]
  - Discomfort [None]
  - Abdominal pain lower [Not Recovered/Not Resolved]
